FAERS Safety Report 4807202-0 (Version None)
Quarter: 2005Q4

REPORT INFORMATION
  Report Type: 
  Country: None (occurrence: None)
  Receive Date: 20051024
  Receipt Date: 20051010
  Transmission Date: 20060501
  Serious: Yes (Other)
  Sender: FDA-Public Use
  Company Number: US-GLAXOSMITHKLINE-A0577618A

PATIENT
  Age: 55 Year
  Sex: Male

DRUGS (1)
  1. COMMIT [Suspect]
     Route: 002

REACTIONS (3)
  - CHOKING [None]
  - COUGH [None]
  - VOMITING [None]
